FAERS Safety Report 8790305 (Version 3)
Quarter: 2012Q4

REPORT INFORMATION
  Report Type: 
  Country: IT (occurrence: IT)
  Receive Date: 20120914
  Receipt Date: 20121019
  Transmission Date: 20130627
  Serious: Yes (Hospitalization)
  Sender: FDA-Public Use
  Company Number: IT-MPIJNJ-2012-06335

PATIENT

DRUGS (3)
  1. VELCADE [Suspect]
     Indication: MULTIPLE MYELOMA
     Dosage: 2.3 mg/m2, UNK
     Route: 042
     Dates: start: 20120818, end: 20120906
  2. VELCADE [Suspect]
     Dosage: UNK
  3. DEXAMETHASONE [Concomitant]
     Indication: MULTIPLE MYELOMA
     Dosage: UNK mg/m2, UNK
     Route: 042
     Dates: start: 20120818, end: 20120906

REACTIONS (2)
  - Incorrect dose administered [Recovered/Resolved]
  - Fluid replacement [Unknown]
